FAERS Safety Report 23940648 (Version 1)
Quarter: 2024Q2

REPORT INFORMATION
  Report Type: Spontaneous
  Country: US (occurrence: US)
  Receive Date: 20240605
  Receipt Date: 20240605
  Transmission Date: 20240716
  Serious: Yes (Other)
  Sender: FDA-Public Use
  Company Number: US-ALKEM LABORATORIES LIMITED-IN-ALKEM-2024-06155

PATIENT
  Age: 64 Year
  Sex: Female

DRUGS (5)
  1. VANCOMYCIN [Interacting]
     Active Substance: VANCOMYCIN
     Indication: Necrotising fasciitis
     Dosage: 2 GRAM (ONE DOSE)
     Route: 065
  2. VANCOMYCIN [Interacting]
     Active Substance: VANCOMYCIN
     Dosage: 1 GRAM, BID (Q 12 HOURS)
     Route: 065
  3. PIPERACILLIN SODIUM\TAZOBACTAM SODIUM [Interacting]
     Active Substance: PIPERACILLIN SODIUM\TAZOBACTAM SODIUM
     Indication: Necrotising fasciitis
     Dosage: UNK
     Route: 065
  4. CLINDAMYCIN [Concomitant]
     Active Substance: CLINDAMYCIN
     Indication: Necrotising fasciitis
     Dosage: UNK
     Route: 065
  5. MEROPENEM [Concomitant]
     Active Substance: MEROPENEM
     Indication: Necrotising fasciitis
     Dosage: UNK
     Route: 065

REACTIONS (2)
  - Acute kidney injury [Recovering/Resolving]
  - Drug level increased [Unknown]
